FAERS Safety Report 15087820 (Version 1)
Quarter: 2018Q2

REPORT INFORMATION
  Report Type: Spontaneous
  Country: BR (occurrence: BR)
  Receive Date: 20180629
  Receipt Date: 20180629
  Transmission Date: 20180711
  Serious: Yes (Other)
  Sender: FDA-Public Use
  Company Number: BR-TEVA-2018-BR-915762

PATIENT
  Age: 66 Year
  Sex: Male
  Weight: 62.5 kg

DRUGS (1)
  1. TEVAOXALI [Suspect]
     Active Substance: OXALIPLATIN
     Indication: GASTRIC CANCER
     Dosage: WITH AN INTERVAL OF 15 DAYS; DATE OF THE LAST DOSE PRIOR TO THE AE 08-MAY-2018
     Route: 065

REACTIONS (1)
  - Haemoglobinaemia [Recovered/Resolved]

NARRATIVE: CASE EVENT DATE: 20180521
